FAERS Safety Report 8978912 (Version 3)
Quarter: 2014Q1

REPORT INFORMATION
  Report Type: Report from Study
  Country: JP (occurrence: JP)
  Receive Date: 20121221
  Receipt Date: 20140319
  Transmission Date: 20141002
  Serious: Yes (Life-Threatening, Hospitalization)
  Sender: FDA-Public Use
  Company Number: JP-009507513-1205USA04837

PATIENT
  Age: 58 Year
  Sex: Male

DRUGS (27)
  1. ZOLINZA CAPSULES 100MG [Suspect]
     Indication: MYCOSIS FUNGOIDES
     Dosage: 400 MG, QD
     Route: 048
     Dates: start: 20111104, end: 20111123
  2. ZOLINZA CAPSULES 100MG [Suspect]
     Dosage: 300 MG, QD
     Route: 048
     Dates: start: 20111124, end: 20111201
  3. ZOLINZA CAPSULES 100MG [Suspect]
     Dosage: 300 MG 6 DAYS A WEEK WITH 1 DAY A WEEK INTERVAL
     Route: 048
     Dates: start: 20111202, end: 20111214
  4. ZOLINZA CAPSULES 100MG [Suspect]
     Dosage: 300 MG 5 DAYS A WEEK WITH 2 DAY A WEEK INTERVAL
     Route: 048
     Dates: start: 20111215, end: 20120125
  5. ZOLINZA CAPSULES 100MG [Suspect]
     Dosage: 300 MG 5 DAYS A WEEK WITH 2 DAY A WEEK INTERVAL
     Route: 048
     Dates: start: 20120216, end: 20120305
  6. ZOLINZA CAPSULES 100MG [Suspect]
     Dosage: 300 MG 5 DAYS A WEEK WITH 2 DAY A WEEK INTERVAL
     Route: 048
     Dates: start: 20120313, end: 20120717
  7. ZOLINZA CAPSULES 100MG [Suspect]
     Dosage: 300 MG 4 DAYS A WEEK WITH 2 DAY A WEEK INTERVAL
     Route: 048
     Dates: start: 20120801, end: 20120822
  8. ZOLINZA CAPSULES 100MG [Suspect]
     Dosage: 200 MG 6 DAYS A WEEK WITH 2 DAY A WEEK INTERVAL
     Route: 048
     Dates: start: 20120823
  9. TIGASON [Concomitant]
     Indication: MYCOSIS FUNGOIDES
     Dosage: 10 MG, QD
     Route: 048
     Dates: start: 201109, end: 20111123
  10. ZINC OXIDE [Concomitant]
     Indication: MYCOSIS FUNGOIDES
     Dosage: 100 G, QD
     Route: 061
     Dates: end: 20120306
  11. MUCOSTA [Concomitant]
     Indication: PROPHYLAXIS
     Dosage: 100 MG, QD
     Route: 048
     Dates: start: 20120221, end: 20120310
  12. SELBEX [Concomitant]
     Indication: PROPHYLAXIS
     Dosage: 50 MG, TID
     Route: 048
     Dates: start: 20120313
  13. BESTRON [Concomitant]
     Indication: CONJUNCTIVITIS BACTERIAL
     Dosage: 0.05 ML, Q6H
     Route: 047
     Dates: start: 20120302, end: 20120430
  14. PROPETO [Concomitant]
     Indication: MYCOSIS FUNGOIDES
     Dosage: 200 G, QD
     Route: 061
     Dates: start: 20120308
  15. PROPETO [Concomitant]
     Dosage: 100 G, QD
     Route: 061
  16. ANTEBATE [Concomitant]
     Indication: MYCOSIS FUNGOIDES
     Dosage: 1 G, QD
     Route: 061
     Dates: start: 20120308, end: 20120313
  17. CRAVIT [Concomitant]
     Indication: ADVERSE EVENT
     Dosage: 500 MG, QD
     Route: 048
     Dates: start: 20111202, end: 20111209
  18. CRAVIT [Concomitant]
     Indication: IMPETIGO
     Dosage: 500 MG, QD
     Route: 048
     Dates: start: 20120511, end: 20120524
  19. BIOFERMIN (BACILLUS SUBTILIS (+) LACTOBACILLUS ACIDOPHILUS (+) STREPTO [Concomitant]
     Indication: ADVERSE EVENT
     Dosage: 1 DF, QD
     Route: 048
     Dates: start: 20111202, end: 20111209
  20. PREDONINE [Concomitant]
     Indication: MYCOSIS FUNGOIDES
     Dosage: 15 MG, QD
     Route: 048
  21. PROMAC (POLAPREZINC) [Concomitant]
     Indication: ADVERSE EVENT
     Dosage: 75 MG, BID
     Route: 048
     Dates: start: 20120606
  22. CUBICIN [Concomitant]
     Indication: STAPHYLOCOCCAL INFECTION
     Dosage: 175 MG, QD
     Route: 051
     Dates: start: 20120525, end: 20120607
  23. CUBICIN [Concomitant]
     Indication: IMPETIGO
  24. MODACIN [Concomitant]
     Indication: PSEUDOMONAS INFECTION
     Dosage: 1 G, BID
     Route: 051
     Dates: start: 20120525, end: 20120607
  25. MODACIN [Concomitant]
     Indication: IMPETIGO
  26. VEGAMOX [Concomitant]
     Indication: CONJUNCTIVITIS BACTERIAL
     Dosage: 0.2 ML, QD
     Route: 047
     Dates: start: 20120528, end: 20120801
  27. HYALEIN [Concomitant]
     Indication: DRY EYE
     Dosage: 0.2 ML, QD
     Route: 047
     Dates: start: 20120528

REACTIONS (10)
  - Thrombocytopenia [Recovered/Resolved]
  - C-reactive protein increased [Recovering/Resolving]
  - Pyrexia [Recovering/Resolving]
  - Anaemia [Not Recovered/Not Resolved]
  - Parotitis [Recovering/Resolving]
  - Thrombocytopenia [Recovering/Resolving]
  - Anaemia [Recovered/Resolved]
  - Decreased appetite [Recovering/Resolving]
  - Dysgeusia [Recovering/Resolving]
  - Hypogeusia [Recovering/Resolving]
